FAERS Safety Report 20119113 (Version 3)
Quarter: 2022Q2

REPORT INFORMATION
  Report Type: Spontaneous
  Country: JP (occurrence: JP)
  Receive Date: 20211126
  Receipt Date: 20220521
  Transmission Date: 20220720
  Serious: Yes (Other)
  Sender: FDA-Public Use
  Company Number: JP-JNJFOC-20211148578

PATIENT
  Age: 60 Year
  Sex: Male

DRUGS (2)
  1. UPTRAVI [Suspect]
     Active Substance: SELEXIPAG
     Indication: Pulmonary arterial hypertension
     Route: 048
     Dates: start: 20210804
  2. UPTRAVI [Suspect]
     Active Substance: SELEXIPAG
     Dosage: UNK - ONGOING
     Route: 048

REACTIONS (2)
  - Melaena [Recovering/Resolving]
  - Headache [Unknown]
